FAERS Safety Report 8811645 (Version 1)
Quarter: 2012Q4

REPORT INFORMATION
  Report Type: Spontaneous
  Country: US (occurrence: None)
  Receive Date: 20120925
  Receipt Date: 20120925
  Transmission Date: 20130627
  Serious: Yes (Hospitalization, Disabling)
  Sender: FDA-Public Use
  Company Number: None

PATIENT
  Age: 66 Year
  Sex: Male
  Weight: 95.26 kg

DRUGS (1)
  1. PRADAXA [Suspect]
     Indication: CARDIAC FIBRILLATION
     Route: 048
     Dates: start: 20101215, end: 20120823

REACTIONS (4)
  - Cerebrovascular accident [None]
  - Visual impairment [None]
  - Impaired work ability [None]
  - Haemorrhage [None]
